FAERS Safety Report 6000237-4 (Version None)
Quarter: 2008Q4

REPORT INFORMATION
  Report Type: 
  Country: None (occurrence: None)
  Receive Date: 20081211
  Receipt Date: 20081128
  Transmission Date: 20090506
  Serious: Yes (Hospitalization)
  Sender: FDA-Public Use
  Company Number: TCI2008A05980

PATIENT
  Age: 7 Decade
  Sex: Male

DRUGS (2)
  1. ACTOS [Suspect]
     Indication: DIABETES MELLITUS
     Dosage: PER ORAL
     Route: 048
     Dates: start: 20080601, end: 20081001
  2. PRAVASTATIN [Suspect]
     Dosage: PER ORAL
     Route: 048

REACTIONS (1)
  - HEPATITIS FULMINANT [None]
